FAERS Safety Report 24759065 (Version 1)
Quarter: 2024Q4

REPORT INFORMATION
  Report Type: Spontaneous
  Country: US (occurrence: US)
  Receive Date: 20241220
  Receipt Date: 20241220
  Transmission Date: 20250114
  Serious: No
  Sender: SEPTODONT
  Company Number: US-SEPTODONT-2023018163

PATIENT

DRUGS (1)
  1. DYCLOPRO [Suspect]
     Active Substance: DYCLONINE HYDROCHLORIDE
     Indication: Local anaesthesia
     Route: 061

REACTIONS (1)
  - Product taste abnormal [Unknown]
